FAERS Safety Report 8033026-X (Version None)
Quarter: 2012Q1

REPORT INFORMATION
  Report Type: 
  Country: None (occurrence: None)
  Receive Date: 20120110
  Receipt Date: 20120104
  Transmission Date: 20120608
  Serious: Yes (Hospitalization)
  Sender: FDA-Public Use
  Company Number: US-BAYER-2012-002399

PATIENT
  Age: 32 Year
  Sex: Female
  Weight: 63.492 kg

DRUGS (5)
  1. YAZ [Suspect]
     Indication: CONTRACEPTION
     Dosage: UNK
     Route: 048
     Dates: start: 20050201, end: 20051201
  2. YAZ [Suspect]
     Dosage: UNK
     Route: 048
     Dates: start: 20090201, end: 20091001
  3. YASMIN [Suspect]
     Dosage: UNK
     Route: 048
     Dates: start: 20090201, end: 20091001
  4. YAZ [Suspect]
     Dosage: UNK
     Route: 048
     Dates: start: 20090801, end: 20091001
  5. YASMIN [Suspect]
     Indication: CONTRACEPTION
     Dosage: UNK
     Route: 048
     Dates: start: 20050201, end: 20051201

REACTIONS (4)
  - CHEST PAIN [None]
  - GALLBLADDER PAIN [None]
  - CHOLECYSTITIS CHRONIC [None]
  - VOMITING [None]
